FAERS Safety Report 5551030-8 (Version None)
Quarter: 2007Q4

REPORT INFORMATION
  Report Type: 
  Country: None (occurrence: None)
  Receive Date: 20071212
  Receipt Date: 20070523
  Transmission Date: 20080405
  Serious: No
  Sender: FDA-Public Use
  Company Number: US-AMGEN-KDL220000

PATIENT
  Sex: Female
  Weight: 73.5 kg

DRUGS (9)
  1. ENBREL [Suspect]
     Indication: RHEUMATOID ARTHRITIS
     Route: 058
     Dates: start: 20070301, end: 20070523
  2. METHOTREXATE [Concomitant]
     Route: 048
     Dates: start: 19920101
  3. FOLIC ACID [Concomitant]
  4. PREVACID [Concomitant]
  5. ULTRAM [Concomitant]
  6. ZYRTEC [Concomitant]
  7. IBUPROFEN [Concomitant]
  8. QUININE [Concomitant]
  9. DIOVAN [Concomitant]

REACTIONS (1)
  - HYPOAESTHESIA [None]
